FAERS Safety Report 9384161 (Version 1)
Quarter: 2013Q3

REPORT INFORMATION
  Report Type: Spontaneous
  Country: US (occurrence: None)
  Receive Date: 20130702
  Receipt Date: 20130702
  Transmission Date: 20140515
  Serious: Yes (Hospitalization)
  Sender: FDA-Public Use
  Company Number: None

PATIENT
  Age: 49 Year
  Sex: Female
  Weight: 87.09 kg

DRUGS (1)
  1. VALSARTAN/HYDROCHLOROTHIAZIDE [Suspect]
     Indication: HYPERTENSION
     Route: 048
     Dates: start: 201210, end: 201211

REACTIONS (7)
  - Vision blurred [None]
  - Bone pain [None]
  - Back pain [None]
  - Pain in extremity [None]
  - Nausea [None]
  - Dizziness [None]
  - Palpitations [None]
